FAERS Safety Report 10681620 (Version 1)
Quarter: 2014Q4

REPORT INFORMATION
  Report Type: Spontaneous
  Country: GB (occurrence: GB)
  Receive Date: 20141230
  Receipt Date: 20141230
  Transmission Date: 20150529
  Serious: Yes (Other)
  Sender: FDA-Public Use
  Company Number: GB-TEVA-530819ISR

PATIENT
  Age: 82 Year
  Sex: Female

DRUGS (3)
  1. METOCLOPRAMIDE. [Suspect]
     Active Substance: METOCLOPRAMIDE
     Dates: start: 20141120
  2. DIAMORPHINE [Suspect]
     Active Substance: DIACETYLMORPHINE
  3. DIAMORPHINE [Suspect]
     Active Substance: DIACETYLMORPHINE
     Dates: start: 20141120

REACTIONS (2)
  - Drug prescribing error [Unknown]
  - Pain [Not Recovered/Not Resolved]
